FAERS Safety Report 8022079 (Version 3)
Quarter: 2013Q3

REPORT INFORMATION
  Report Type: Report from Study
  Country: AU (occurrence: AU)
  Receive Date: 20110705
  Receipt Date: 20130911
  Transmission Date: 20140515
  Serious: Yes (Other)
  Sender: FDA-Public Use
  Company Number: PHHY2010AU70512

PATIENT
  Age: 57 Year
  Sex: Male

DRUGS (4)
  1. CLOZARIL [Suspect]
     Dosage: 125 MG, UNK
     Dates: start: 19981119
  2. METOPROLOL [Concomitant]
     Dosage: 25 MG, BID
  3. RAMIPRIL [Concomitant]
     Dosage: 1.25 MG, AT NIGHTLY
  4. ATORVASTATIN [Concomitant]
     Dosage: 800 MG, QD

REACTIONS (17)
  - Dilatation ventricular [Unknown]
  - Mitral valve disease [Unknown]
  - Hypokinesia [Unknown]
  - Tachycardia [Unknown]
  - Blood pressure increased [Unknown]
  - Myocarditis [Unknown]
  - Myocardial infarction [Unknown]
  - Dyspnoea [Unknown]
  - Hypotension [Unknown]
  - Myocardial ischaemia [Unknown]
  - Ejection fraction decreased [Unknown]
  - Troponin I increased [Unknown]
  - Electrocardiogram ST segment abnormal [Unknown]
  - Myocardial strain [Unknown]
  - Cardiac enzymes increased [Unknown]
  - Coronary artery disease [Unknown]
  - Sleep disorder [Unknown]
